FAERS Safety Report 7815819-4 (Version None)
Quarter: 2011Q4

REPORT INFORMATION
  Report Type: 
  Country: None (occurrence: None)
  Receive Date: 20111014
  Receipt Date: 20111003
  Transmission Date: 20120403
  Serious: Yes (Hospitalization)
  Sender: FDA-Public Use
  Company Number: CA-ROCHE-796947

PATIENT
  Sex: Female
  Weight: 81.72 kg

DRUGS (18)
  1. INSULIN [Concomitant]
  2. COZAAR [Concomitant]
     Indication: BLOOD PRESSURE
  3. CALCIUM CARBONATE [Concomitant]
  4. VITAMIN D [Concomitant]
  5. PREVACID [Concomitant]
  6. METRONIDAZOLE [Concomitant]
     Indication: ANTIBIOTIC THERAPY
     Dosage: DOSE : 14 PILLS
  7. MEDROL [Concomitant]
  8. OXYCET [Concomitant]
     Indication: PAIN
  9. ACETAMINOFEN [Concomitant]
     Route: 048
  10. SEPTRA DS [Concomitant]
     Dosage: DRUG NAME MENTIONED AS CEPTRA DS, THERAPY DATES ; FOR 2 YEARS
  11. MORPHINE [Concomitant]
     Indication: PAIN
  12. METHYLPREDNISOLONE [Concomitant]
     Route: 042
  13. MABTHERA [Suspect]
     Indication: RHEUMATOID ARTHRITIS
     Route: 042
     Dates: start: 20091126, end: 20100729
  14. FOLIC ACID [Concomitant]
  15. METHOTREXATE [Concomitant]
     Dosage: DOSE FORM : PILLS
  16. BENADRYL HCL [Concomitant]
     Route: 048
  17. ADALAT [Concomitant]
     Indication: BLOOD PRESSURE
  18. CRESTOR [Concomitant]

REACTIONS (2)
  - ENTERITIS INFECTIOUS [None]
  - INTESTINAL OBSTRUCTION [None]
